FAERS Safety Report 17289623 (Version 1)
Quarter: 2020Q1

REPORT INFORMATION
  Report Type: Other
  Country: US (occurrence: US)
  Receive Date: 20200120
  Receipt Date: 20200120
  Transmission Date: 20200409
  Serious: Yes (Death)
  Sender: FDA-Public Use
  Company Number: US-INTELLIPHARMACEUTICS CORP.-2079209

PATIENT
  Age: 70 Year
  Sex: Female

DRUGS (8)
  1. QUETIAPINE FUMARATE. [Suspect]
     Active Substance: QUETIAPINE FUMARATE
     Indication: PRODUCT USED FOR UNKNOWN INDICATION
     Route: 048
  2. LITHIUM. [Suspect]
     Active Substance: LITHIUM
     Route: 048
  3. LAMOTRIGINE. [Suspect]
     Active Substance: LAMOTRIGINE
     Route: 048
  4. PHENDIMETRAZINE. [Suspect]
     Active Substance: PHENDIMETRAZINE TARTRATE
     Route: 048
  5. IBUPROFEN. [Suspect]
     Active Substance: IBUPROFEN
     Route: 048
  6. SALICYLATES NOS [Suspect]
     Active Substance: UNSPECIFIED INGREDIENT
     Route: 048
  7. CITALOPRAM [Suspect]
     Active Substance: CITALOPRAM HYDROBROMIDE
     Route: 048
  8. DIPHENHYDRAMINE. [Suspect]
     Active Substance: DIPHENHYDRAMINE
     Route: 048

REACTIONS (1)
  - Completed suicide [Fatal]

NARRATIVE: CASE EVENT DATE: 2018
